FAERS Safety Report 17591594 (Version 1)
Quarter: 2020Q1

REPORT INFORMATION
  Report Type: Report from Study
  Country: US (occurrence: US)
  Receive Date: 20200327
  Receipt Date: 20200327
  Transmission Date: 20200409
  Serious: Yes (Other)
  Sender: FDA-Public Use
  Company Number: NVSC2020US082304

PATIENT
  Sex: Female

DRUGS (1)
  1. GILENYA [Suspect]
     Active Substance: FINGOLIMOD HYDROCHLORIDE
     Indication: MULTIPLE SCLEROSIS
     Dosage: 0.5 MG, QD
     Route: 048
     Dates: start: 20180201

REACTIONS (13)
  - Neuropathy peripheral [Unknown]
  - Laryngitis [Unknown]
  - Fatigue [Unknown]
  - Bronchitis [Unknown]
  - Muscle spasticity [Unknown]
  - Oropharyngeal pain [Unknown]
  - Nasal congestion [Unknown]
  - Cough [Unknown]
  - Movement disorder [Unknown]
  - Migraine [Unknown]
  - Muscular weakness [Unknown]
  - Asthma [Recovered/Resolved]
  - Upper-airway cough syndrome [Unknown]
